FAERS Safety Report 8762634 (Version 5)
Quarter: 2019Q2

REPORT INFORMATION
  Report Type: Spontaneous
  Country: US (occurrence: US)
  Receive Date: 20120830
  Receipt Date: 20190408
  Transmission Date: 20190711
  Serious: Yes (Hospitalization, Other)
  Sender: FDA-Public Use
  Company Number: US-ROCHE-1002662

PATIENT
  Age: 67 Year
  Sex: Female
  Weight: 74.91 kg

DRUGS (4)
  1. FOSAMAX [Suspect]
     Active Substance: ALENDRONATE SODIUM
     Indication: OSTEITIS DEFORMANS
  2. PROLIA [Suspect]
     Active Substance: DENOSUMAB
     Indication: PRODUCT USED FOR UNKNOWN INDICATION
     Route: 065
  3. BONIVA [Suspect]
     Active Substance: IBANDRONATE SODIUM
     Indication: OSTEOPOROSIS
     Route: 048
  4. FOSAMAX [Suspect]
     Active Substance: ALENDRONATE SODIUM
     Indication: OSTEOPOROSIS
     Route: 048

REACTIONS (12)
  - Metatarsalgia [Unknown]
  - Radius fracture [Unknown]
  - Low turnover osteopathy [Unknown]
  - Anxiety [Unknown]
  - Tibia fracture [Unknown]
  - Femur fracture [Unknown]
  - Emotional distress [Unknown]
  - Spinal stenosis [Unknown]
  - Stress fracture [Unknown]
  - Lumbar radiculopathy [Unknown]
  - Injury [Unknown]
  - Foot fracture [Unknown]

NARRATIVE: CASE EVENT DATE: 20090114
